FAERS Safety Report 6179034-5 (Version None)
Quarter: 2009Q2

REPORT INFORMATION
  Report Type: 
  Country: None (occurrence: None)
  Receive Date: 20090505
  Receipt Date: 20090421
  Transmission Date: 20091009
  Serious: Yes (Death, Hospitalization, Other)
  Sender: FDA-Public Use
  Company Number: US-BAYER-US-2007-006375

PATIENT
  Age: 44 Year
  Sex: Female
  Weight: 90 kg

DRUGS (48)
  1. MAGNEVIST [Suspect]
     Indication: NUCLEAR MAGNETIC RESONANCE IMAGING
     Dosage: PATIENT RECEIVED A CUMULATIVE DOSE OF APPROXIMATELY 158 ML PRIOR TO SYMPTOM ONSET
     Route: 042
  2. MAGNEVIST [Suspect]
     Dosage: UNK, 1 DOSE
     Route: 042
     Dates: start: 19990217, end: 19990217
  3. MAGNEVIST [Suspect]
     Dosage: UNK, 1 DOSE
     Route: 042
     Dates: start: 19990304, end: 19990304
  4. MAGNEVIST [Suspect]
     Dosage: UNK, 1 DOSE
     Route: 042
     Dates: start: 19990328, end: 19990328
  5. MAGNEVIST [Suspect]
     Dosage: UNK, 1 DOSE
     Route: 042
     Dates: start: 20000125, end: 20000125
  6. MAGNEVIST [Suspect]
     Route: 042
     Dates: start: 19990210, end: 19990210
  7. MAGNEVIST [Suspect]
     Dosage: RENAL MRA
     Route: 042
     Dates: start: 20040618, end: 20040618
  8. MAGNEVIST [Suspect]
     Dosage: UNK, 1 DOSE
     Route: 042
     Dates: start: 19990504, end: 19990504
  9. MAGNEVIST [Suspect]
     Dosage: UNK, 1 DOSE
     Route: 042
     Dates: start: 19990319, end: 19990319
  10. OMNISCAN [Suspect]
     Indication: NUCLEAR MAGNETIC RESONANCE IMAGING
  11. OPTIMARK [Suspect]
     Indication: NUCLEAR MAGNETIC RESONANCE IMAGING
  12. MULTIHANCE [Suspect]
     Indication: NUCLEAR MAGNETIC RESONANCE IMAGING
  13. PROHANCE [Suspect]
     Indication: NUCLEAR MAGNETIC RESONANCE IMAGING
  14. COUMADIN [Concomitant]
  15. ATROVENT [Concomitant]
  16. PREDNISONE [Concomitant]
  17. TORSEMIDE [Concomitant]
  18. NEURONTIN [Concomitant]
  19. SINGULAIR [Concomitant]
  20. ADVAIR HFA [Concomitant]
  21. ZANTAC [Concomitant]
  22. ZOLOFT [Concomitant]
  23. RENAGEL [Concomitant]
     Dosage: UNIT DOSE: 800 MG
  24. K-DUR [Concomitant]
  25. EPOGEN [Concomitant]
     Dosage: UNK, 2X/WEEK
     Route: 058
  26. BACTRIM DS [Concomitant]
  27. PROCRIT [Concomitant]
  28. SENNA [Concomitant]
     Dosage: UNK, UNK
  29. NEPHROCAPS [Concomitant]
  30. DILAUDID [Concomitant]
  31. ALBUTEROL [Concomitant]
  32. ATIVAN [Concomitant]
  33. MAALOX /USA/ [Concomitant]
  34. DULCOLAX [Concomitant]
  35. ONDANSETRON HYDROCHLORIDE [Concomitant]
  36. COMPAZINE [Concomitant]
  37. AMIODARONE [Concomitant]
  38. SEROQUEL [Concomitant]
  39. VASOPRESSIN AND ANALOGUES [Concomitant]
  40. HYDROCORTISONE [Concomitant]
  41. MIDODRINE [Concomitant]
  42. NEXIUM [Concomitant]
  43. NOREPINEPHRINE [Concomitant]
  44. ARANESP [Concomitant]
     Dosage: UNIT DOSE: 40 ?G
     Route: 058
  45. INSULIN [Concomitant]
  46. FISH OIL [Concomitant]
     Dosage: UNK, UNK
  47. LIDODERM [Concomitant]
     Dosage: UNK, UNK
  48. MIRENA [Concomitant]

REACTIONS (29)
  - ANHEDONIA [None]
  - ANXIETY [None]
  - ARTHRALGIA [None]
  - BRONCHOPNEUMONIA [None]
  - DEFORMITY [None]
  - DRY SKIN [None]
  - ENDOCARDIAL FIBROSIS [None]
  - EXCORIATION [None]
  - EXTREMITY CONTRACTURE [None]
  - HYPOTENSION [None]
  - INTERSTITIAL LUNG DISEASE [None]
  - JOINT CONTRACTURE [None]
  - JOINT RANGE OF MOTION DECREASED [None]
  - JOINT STIFFNESS [None]
  - MOTOR DYSFUNCTION [None]
  - MULTI-ORGAN FAILURE [None]
  - NEPHROGENIC SYSTEMIC FIBROSIS [None]
  - NEURALGIA [None]
  - OEDEMA PERIPHERAL [None]
  - PAIN [None]
  - PRURITUS [None]
  - SCAR [None]
  - SKIN EXFOLIATION [None]
  - SKIN FIBROSIS [None]
  - SKIN HYPERPIGMENTATION [None]
  - SKIN HYPERTROPHY [None]
  - SKIN INDURATION [None]
  - SKIN TIGHTNESS [None]
  - STASIS DERMATITIS [None]
